FAERS Safety Report 20933336 (Version 1)
Quarter: 2022Q2

REPORT INFORMATION
  Report Type: Spontaneous
  Country: AT (occurrence: AT)
  Receive Date: 20220608
  Receipt Date: 20220608
  Transmission Date: 20220721
  Serious: Yes (Death, Other)
  Sender: FDA-Public Use
  Company Number: AT-NOVARTISPH-NVSC2022AT131893

PATIENT
  Age: 70 Year
  Sex: Female

DRUGS (3)
  1. VORICONAZOLE [Suspect]
     Active Substance: VORICONAZOLE
     Indication: Bronchopulmonary aspergillosis
     Dosage: UNK
     Route: 065
     Dates: start: 20210914, end: 20210915
  2. AMPHOTERICIN B [Suspect]
     Active Substance: AMPHOTERICIN B
     Indication: Bronchopulmonary aspergillosis
     Dosage: UNK
     Route: 065
     Dates: start: 20210926, end: 20211004
  3. ISAVUCONAZONIUM SULFATE [Suspect]
     Active Substance: ISAVUCONAZONIUM SULFATE
     Indication: Bronchopulmonary aspergillosis
     Dosage: UNK
     Route: 065
     Dates: start: 20210916, end: 20210926

REACTIONS (2)
  - Death [Fatal]
  - Fungal infection [Unknown]

NARRATIVE: CASE EVENT DATE: 20210901
